FAERS Safety Report 14603624 (Version 1)
Quarter: 2018Q1

REPORT INFORMATION
  Report Type: Spontaneous
  Country: US (occurrence: US)
  Receive Date: 20180305
  Receipt Date: 20180305
  Transmission Date: 20180509
  Serious: Yes (Other)
  Sender: FDA-Public Use
  Company Number: None

PATIENT
  Age: 2 Year
  Sex: Male
  Weight: 12.6 kg

DRUGS (2)
  1. DIASTAT [Concomitant]
     Active Substance: DIAZEPAM
  2. ORAJEL TEETHING (HOMEOPATHIC) [Suspect]
     Active Substance: HOMEOPATHICS
     Indication: TEETHING
     Dosage: QUANTITY:1 PEA SIZE;OTHER FREQUENCY:6 T?MES;?
     Route: 061
     Dates: start: 20160627, end: 20170918

REACTIONS (1)
  - Seizure [None]

NARRATIVE: CASE EVENT DATE: 20170612
